FAERS Safety Report 6331629-1 (Version None)
Quarter: 2009Q3

REPORT INFORMATION
  Report Type: 
  Country: None (occurrence: None)
  Receive Date: 20090827
  Receipt Date: 20090821
  Transmission Date: 20100115
  Serious: Yes (Other)
  Sender: FDA-Public Use
  Company Number: PHEH2009US09747

PATIENT
  Sex: Female

DRUGS (5)
  1. TEKTURNA HCT [Suspect]
     Dosage: 300/UNKNOWN MG, UNK
  2. DIURETICS [Concomitant]
     Dosage: 25 MG, UNK
  3. DIURETICS [Concomitant]
     Dosage: 12.5 MG, UNK
  4. METOPROLOL [Concomitant]
     Dosage: 25 MG, UNK
  5. TOPROL-XL [Concomitant]

REACTIONS (3)
  - ACCIDENT [None]
  - DIZZINESS [None]
  - MENTAL IMPAIRMENT [None]
